FAERS Safety Report 24019427 (Version 2)
Quarter: 2024Q4

REPORT INFORMATION
  Report Type: Spontaneous
  Country: US (occurrence: US)
  Receive Date: 20240627
  Receipt Date: 20241001
  Transmission Date: 20250115
  Serious: Yes (Disabling, Other)
  Sender: BRISTOL MYERS SQUIBB
  Company Number: US-BRISTOL-MYERS SQUIBB COMPANY-2024-102476

PATIENT
  Age: 49 Year
  Sex: Female

DRUGS (1)
  1. REVLIMID [Suspect]
     Active Substance: LENALIDOMIDE
     Indication: Plasma cell myeloma
     Dosage: FREQUENCY: 21 PER CYCLE, TAKE ON BY MOUTH, EVERY DAY, FOR 21 DAYS AND A 7 DAY BREAK
     Route: 048
     Dates: start: 20230327

REACTIONS (3)
  - Neuropathy peripheral [Not Recovered/Not Resolved]
  - Paraesthesia [Not Recovered/Not Resolved]
  - Condition aggravated [Not Recovered/Not Resolved]

NARRATIVE: CASE EVENT DATE: 20230901
